FAERS Safety Report 23847315 (Version 1)
Quarter: 2024Q2

REPORT INFORMATION
  Report Type: Spontaneous
  Country: US (occurrence: None)
  Receive Date: 20240513
  Receipt Date: 20240513
  Transmission Date: 20240716
  Serious: Yes (Death, Hospitalization)
  Sender: FDA-Public Use
  Company Number: US-USWM, LLC-UWM202405-000033

PATIENT
  Age: 11 Year
  Sex: Female

DRUGS (3)
  1. IWILFIN [Suspect]
     Active Substance: EFLORNITHINE HYDROCHLORIDE
     Indication: Neuroblastoma
     Dates: start: 20240124
  2. IWILFIN [Suspect]
     Active Substance: EFLORNITHINE HYDROCHLORIDE
     Dates: start: 20240221, end: 20240410
  3. FENTANYL [Concomitant]
     Active Substance: FENTANYL\FENTANYL CITRATE
     Dosage: 12MCG

REACTIONS (4)
  - Neuroblastoma [Fatal]
  - Disease progression [Fatal]
  - Drug intolerance [Unknown]
  - Diarrhoea [Unknown]

NARRATIVE: CASE EVENT DATE: 20240201
